FAERS Safety Report 14366624 (Version 1)
Quarter: 2018Q1

REPORT INFORMATION
  Report Type: Spontaneous
  Country: FR (occurrence: FR)
  Receive Date: 20180109
  Receipt Date: 20180109
  Transmission Date: 20180509
  Serious: Yes (Hospitalization)
  Sender: FDA-Public Use
  Company Number: FR-AUROBINDO-AUR-APL-2018-001160

PATIENT
  Age: 38 Year
  Sex: Male

DRUGS (3)
  1. VALPROIC ACID. [Suspect]
     Active Substance: VALPROIC ACID
     Indication: EPILEPSY
     Dosage: 1 G, UNK
     Route: 065
  2. CARBAMAZEPINE. [Concomitant]
     Active Substance: CARBAMAZEPINE
     Indication: FOCAL DYSCOGNITIVE SEIZURES
     Dosage: 1-2 G, DAILY
     Route: 065
  3. MEFLOQUINE [Interacting]
     Active Substance: MEFLOQUINE
     Indication: MALARIA PROPHYLAXIS
     Dosage: 250 MG, EVERY WEEK
     Route: 048

REACTIONS (3)
  - Drug half-life reduced [Unknown]
  - Drug interaction [Unknown]
  - Epilepsy [Unknown]
